FAERS Safety Report 14082030 (Version 2)
Quarter: 2018Q1

REPORT INFORMATION
  Report Type: Spontaneous
  Country: US (occurrence: US)
  Receive Date: 20171012
  Receipt Date: 20180324
  Transmission Date: 20180508
  Serious: No
  Sender: FDA-Public Use
  Company Number: US-MYLANLABS-2017M1049507

PATIENT
  Sex: Female

DRUGS (1)
  1. TAMOXIFEN [Suspect]
     Active Substance: TAMOXIFEN
     Indication: BREAST CANCER FEMALE
     Dosage: UNK

REACTIONS (5)
  - Vulvovaginal pain [Unknown]
  - Endometrial hyperplasia [Unknown]
  - Uterine polyp [Unknown]
  - Uterine pain [None]
  - Uterine spasm [Unknown]
